FAERS Safety Report 6041400-6 (Version None)
Quarter: 2009Q1

REPORT INFORMATION
  Report Type: 
  Country: None (occurrence: None)
  Receive Date: 20090116
  Receipt Date: 20081010
  Transmission Date: 20090719
  Serious: No
  Sender: FDA-Public Use
  Company Number: US-BRISTOL-MYERS SQUIBB COMPANY-14365761

PATIENT
  Age: 63 Year
  Sex: Female
  Weight: 61 kg

DRUGS (10)
  1. ABILIFY [Suspect]
     Indication: MAJOR DEPRESSION
     Dates: start: 20081001
  2. BUSPIRONE HCL [Concomitant]
  3. EFFEXOR [Concomitant]
  4. LITHIUM [Concomitant]
  5. VERAPAMIL [Concomitant]
  6. TRAZODONE HCL [Concomitant]
  7. SYNTHROID [Concomitant]
  8. NEXIUM [Concomitant]
  9. EVOXAC [Concomitant]
  10. LISINOPRIL [Concomitant]

REACTIONS (2)
  - INSOMNIA [None]
  - SALIVARY HYPERSECRETION [None]
